FAERS Safety Report 7631038-9 (Version None)
Quarter: 2011Q3

REPORT INFORMATION
  Report Type: 
  Country: None (occurrence: None)
  Receive Date: 20110725
  Receipt Date: 20110719
  Transmission Date: 20111222
  Serious: No
  Sender: FDA-Public Use
  Company Number: US-BIOGENIDEC-2011BI026892

PATIENT
  Age: 24 Year
  Sex: Male

DRUGS (1)
  1. AVONEX [Suspect]
     Indication: MULTIPLE SCLEROSIS
     Route: 030
     Dates: start: 20110404

REACTIONS (6)
  - FEELING COLD [None]
  - CHEST DISCOMFORT [None]
  - PARALYSIS [None]
  - INFLUENZA LIKE ILLNESS [None]
  - ASTHENIA [None]
  - DYSPNOEA [None]
